FAERS Safety Report 8576871-4 (Version None)
Quarter: 2012Q3

REPORT INFORMATION
  Report Type: 
  Country: None (occurrence: None)
  Receive Date: 20120807
  Receipt Date: 20120730
  Transmission Date: 20120928
  Serious: Yes (Hospitalization, Other)
  Sender: FDA-Public Use
  Company Number: US-ACTELION-A-US2012-66345

PATIENT
  Age: 74 Year
  Sex: Male

DRUGS (3)
  1. SILDENAFIL [Concomitant]
  2. TRACLEER [Suspect]
     Indication: PULMONARY ARTERIAL HYPERTENSION
     Dosage: UNK
     Route: 048
     Dates: start: 20090903
  3. CALCIUM CHANNEL BLOCKERS [Concomitant]

REACTIONS (3)
  - TRANSIENT ISCHAEMIC ATTACK [None]
  - PANCREATITIS [None]
  - DEMENTIA ALZHEIMER'S TYPE [None]
